FAERS Safety Report 16868024 (Version 4)
Quarter: 2019Q4

REPORT INFORMATION
  Report Type: Spontaneous
  Country: US (occurrence: US)
  Receive Date: 20190930
  Receipt Date: 20191210
  Transmission Date: 20200122
  Serious: Yes (Other)
  Sender: FDA-Public Use
  Company Number: US-KARYOPHARM-2019KPT000437

PATIENT

DRUGS (2)
  1. XPOVIO [Suspect]
     Active Substance: SELINEXOR
     Indication: PLASMA CELL MYELOMA
     Dosage: 80 MG, 2X/WEEK
     Route: 048
     Dates: start: 20190814, end: 20190904
  2. XPOVIO [Suspect]
     Active Substance: SELINEXOR
     Dosage: 80 MG, WEEKLY
     Route: 048
     Dates: start: 20190904, end: 20190912

REACTIONS (14)
  - Decreased appetite [Unknown]
  - Flatulence [Unknown]
  - Fatigue [Unknown]
  - Oral candidiasis [Unknown]
  - Weight decreased [Unknown]
  - Dyspnoea [Unknown]
  - Diarrhoea [Unknown]
  - Nausea [Unknown]
  - Abdominal distension [Unknown]
  - Pleural effusion [Unknown]
  - Thrombocytopenia [Unknown]
  - Dehydration [Unknown]
  - Anaemia [Unknown]
  - Asthenia [Unknown]
